FAERS Safety Report 16919118 (Version 2)
Quarter: 2019Q4

REPORT INFORMATION
  Report Type: Report from Study
  Country: US (occurrence: US)
  Receive Date: 20191015
  Receipt Date: 20191030
  Transmission Date: 20200122
  Serious: Yes (Hospitalization)
  Sender: FDA-Public Use
  Company Number: NVSC2019US001304

PATIENT
  Age: 66 Year
  Sex: Female

DRUGS (2)
  1. TAFINLAR [Suspect]
     Active Substance: DABRAFENIB MESYLATE
     Indication: OVARIAN CANCER
     Dosage: 150 MG, BID
     Route: 048
     Dates: start: 20190816
  2. MEKINIST [Suspect]
     Active Substance: TRAMETINIB DIMETHYL SULFOXIDE
     Indication: OVARIAN CANCER
     Dosage: 2 MG, QD
     Route: 048
     Dates: start: 20190816

REACTIONS (8)
  - Chills [Unknown]
  - Malaise [Unknown]
  - Vomiting [Unknown]
  - Product use in unapproved indication [Unknown]
  - Electrolyte imbalance [Unknown]
  - Nausea [Unknown]
  - Dehydration [Unknown]
  - Diarrhoea [Unknown]

NARRATIVE: CASE EVENT DATE: 20190915
